FAERS Safety Report 25951554 (Version 1)
Quarter: 2025Q4

REPORT INFORMATION
  Report Type: Spontaneous
  Country: CN (occurrence: CN)
  Receive Date: 20251023
  Receipt Date: 20251023
  Transmission Date: 20260118
  Serious: Yes (Other)
  Sender: ACCORD
  Company Number: CN-Accord-509406

PATIENT
  Age: 65 Year
  Sex: Male

DRUGS (6)
  1. CISPLATIN [Suspect]
     Active Substance: CISPLATIN
     Indication: Oesophageal squamous cell carcinoma
     Dosage: 2 CYCLES
     Dates: start: 202109, end: 2021
  2. CAMRELIZUMAB [Suspect]
     Active Substance: CAMRELIZUMAB
     Indication: Oesophageal squamous cell carcinoma
     Dosage: 2 CYCLES THEN ADDITIONAL 5 CYCLES
     Dates: start: 202109, end: 202203
  3. PACLITAXEL [Suspect]
     Active Substance: PACLITAXEL
     Indication: Oesophageal squamous cell carcinoma
     Dosage: 2 CYCLES THEN ADDITIONAL 5 CYCLES
     Dates: start: 202109, end: 202204
  4. CISPLATIN [Suspect]
     Active Substance: CISPLATIN
     Indication: Metastases to liver
     Dosage: 2 CYCLES
     Dates: start: 202109, end: 2021
  5. PACLITAXEL [Suspect]
     Active Substance: PACLITAXEL
     Indication: Metastases to liver
     Dosage: 2 CYCLES THEN ADDITIONAL 5 CYCLES
     Dates: start: 202109, end: 202204
  6. CAMRELIZUMAB [Suspect]
     Active Substance: CAMRELIZUMAB
     Indication: Metastases to liver
     Dosage: 2 CYCLES THEN ADDITIONAL 5 CYCLES
     Dates: start: 202109, end: 202203

REACTIONS (1)
  - Anaemia [Unknown]

NARRATIVE: CASE EVENT DATE: 20210101
